FAERS Safety Report 12184918 (Version 2)
Quarter: 2016Q2

REPORT INFORMATION
  Report Type: Report from Study
  Country: CA (occurrence: CA)
  Receive Date: 20160316
  Receipt Date: 20160503
  Transmission Date: 20160815
  Serious: Yes (Other)
  Sender: FDA-Public Use
  Company Number: CA-JNJFOC-20160308029

PATIENT
  Age: 29 Year
  Sex: Female
  Weight: 84 kg

DRUGS (2)
  1. STELARA [Suspect]
     Active Substance: USTEKINUMAB
     Indication: CROHN^S DISEASE
     Route: 058
     Dates: start: 20151215
  2. STELARA [Suspect]
     Active Substance: USTEKINUMAB
     Indication: CROHN^S DISEASE
     Route: 058
     Dates: start: 20160308

REACTIONS (5)
  - Influenza [Unknown]
  - Postoperative wound infection [Recovered/Resolved]
  - Off label use [Unknown]
  - Product use issue [Unknown]
  - Intestinal operation [Unknown]

NARRATIVE: CASE EVENT DATE: 20151215
